FAERS Safety Report 7237479-6 (Version None)
Quarter: 2011Q1

REPORT INFORMATION
  Report Type: 
  Country: None (occurrence: None)
  Receive Date: 20110112
  Receipt Date: 20101227
  Transmission Date: 20110831
  Serious: Yes (Life-Threatening, Hospitalization)
  Sender: FDA-Public Use
  Company Number: TCI2010A04448

PATIENT
  Age: 60 Year
  Sex: Female

DRUGS (3)
  1. LANSAP (LANSOPRAZOLE, CLARITHROMYCIN, AMOXICILIN) [Suspect]
     Indication: HELICOBACTER INFECTION
     Dosage: (2 IN 1 D) PER ORAL
     Route: 048
     Dates: start: 20090210, end: 20090216
  2. AMARYL [Suspect]
     Indication: DIABETES MELLITUS
     Dosage: 3 MG (3 MG, 1 IN 1 D) PER ORAL
     Route: 048
     Dates: end: 20090215
  3. BASEN (VOGLIBOSE) [Concomitant]

REACTIONS (4)
  - HYPOGLYCAEMIA [None]
  - DRUG INTERACTION [None]
  - MOANING [None]
  - ALTERED STATE OF CONSCIOUSNESS [None]
